FAERS Safety Report 4913539-7 (Version None)
Quarter: 2006Q1

REPORT INFORMATION
  Report Type: 
  Country: None (occurrence: None)
  Receive Date: 20060216
  Receipt Date: 20060106
  Transmission Date: 20060701
  Serious: Yes (Other)
  Sender: FDA-Public Use
  Company Number: 2006CG00071

PATIENT
  Age: 62 Year
  Sex: Female

DRUGS (1)
  1. ZOMIGORO [Suspect]
     Indication: MIGRAINE
     Route: 048
     Dates: start: 20050101

REACTIONS (2)
  - HEADACHE [None]
  - INCORRECT DOSE ADMINISTERED [None]
